FAERS Safety Report 8498353 (Version 3)
Quarter: 2013Q1

REPORT INFORMATION
  Report Type: Spontaneous
  Country: FR (occurrence: FR)
  Receive Date: 20120406
  Receipt Date: 20130115
  Transmission Date: 20140127
  Serious: Yes (Hospitalization)
  Sender: FDA-Public Use
  Company Number: PHHY2012FR025836

PATIENT
  Age: 32 Year
  Sex: Male

DRUGS (19)
  1. MYFORTIC [Suspect]
     Indication: LUNG TRANSPLANT
     Dosage: 360 MG, QID
  2. PROGRAF [Suspect]
     Indication: LUNG TRANSPLANT
     Dosage: 5.5 MG, DAILY
  3. TEGELINE [Concomitant]
     Dosage: 5 G, UNK
     Route: 042
     Dates: start: 20120215
  4. TEGELINE [Concomitant]
     Dosage: 5 G, UNK
     Route: 042
     Dates: start: 20120216
  5. TEGELINE [Concomitant]
     Dosage: 5 G, UNK
     Route: 042
     Dates: start: 20120217
  6. TEGELINE [Concomitant]
     Dosage: 5 G, UNK
     Route: 042
     Dates: start: 20120218
  7. PRIVIGEN//IMMUNOGLOBULIN G HUMAN [Suspect]
     Dosage: 10 G, UNK
     Route: 042
     Dates: start: 20120130
  8. PRIVIGEN [Suspect]
     Dosage: 10 G, UNK
     Route: 042
     Dates: start: 20120131
  9. PRIVIGEN [Suspect]
     Dosage: 10 G, UNK
     Route: 042
     Dates: start: 20120203
  10. PRIVIGEN [Suspect]
     Dosage: 10 G, UNK
     Route: 042
     Dates: start: 20120204
  11. PRIVIGEN [Suspect]
     Dosage: 60 G, UNK
     Route: 042
     Dates: start: 20120208
  12. PRIVIGEN [Suspect]
     Dosage: 5 G, UNK
     Route: 042
     Dates: start: 20120209
  13. CORTANCYL [Concomitant]
     Indication: LUNG TRANSPLANT
     Dosage: 10 MG, QD
  14. RITUXIMAB [Concomitant]
     Dosage: UNK UKN, UNK
  15. IMMUNOGLOBULINS [Concomitant]
     Dosage: UNK UKN, UNK
     Route: 042
  16. PLASMAPHERESIS [Concomitant]
     Dosage: UNK UKN, UNK
     Dates: start: 20120130
  17. PLASMAPHERESIS [Concomitant]
     Dosage: UNK UKN, UNK
     Dates: start: 20120131
  18. PLASMAPHERESIS [Concomitant]
     Dosage: UNK UKN, UNK
     Dates: start: 20120201
  19. PLASMAPHERESIS [Concomitant]
     Dosage: UNK UKN, UNK
     Dates: start: 20120214, end: 20120215

REACTIONS (6)
  - Pancytopenia [Recovered/Resolved with Sequelae]
  - Leukopenia [Recovered/Resolved]
  - Thrombocytopenia [Recovered/Resolved]
  - Lymphopenia [Recovered/Resolved]
  - Anaemia [Recovered/Resolved]
  - Neutropenia [Recovering/Resolving]
